FAERS Safety Report 21914111 (Version 1)
Quarter: 2023Q1

REPORT INFORMATION
  Report Type: Spontaneous
  Country: US (occurrence: US)
  Receive Date: 20230126
  Receipt Date: 20230126
  Transmission Date: 20230417
  Serious: No
  Sender: FDA-Public Use
  Company Number: US-ALLERGAN-2228925US

PATIENT
  Sex: Female

DRUGS (11)
  1. BOTOX [Suspect]
     Active Substance: ONABOTULINUMTOXINA
     Indication: Facial pain
     Dosage: UNK UNK, SINGLE
     Dates: start: 20220412, end: 20220412
  2. BOTOX [Suspect]
     Active Substance: ONABOTULINUMTOXINA
     Indication: Swelling
  3. BOTOX [Suspect]
     Active Substance: ONABOTULINUMTOXINA
     Indication: Migraine
  4. BOTOX [Suspect]
     Active Substance: ONABOTULINUMTOXINA
     Indication: Torticollis
  5. CLOPIDOGREL [Concomitant]
     Active Substance: CLOPIDOGREL BISULFATE
     Indication: Ischaemia
  6. NORTRIPTYLINE [Concomitant]
     Active Substance: NORTRIPTYLINE
     Indication: Paraesthesia
  7. NORTRIPTYLINE [Concomitant]
     Active Substance: NORTRIPTYLINE
     Indication: Migraine
  8. GABAPENTIN [Concomitant]
     Active Substance: GABAPENTIN
     Indication: Paraesthesia
  9. GABAPENTIN [Concomitant]
     Active Substance: GABAPENTIN
     Indication: Migraine
  10. VENLAFAXINE [Concomitant]
     Active Substance: VENLAFAXINE HYDROCHLORIDE
     Indication: Paraesthesia
  11. VENLAFAXINE [Concomitant]
     Active Substance: VENLAFAXINE HYDROCHLORIDE
     Indication: Migraine

REACTIONS (17)
  - Facial pain [Not Recovered/Not Resolved]
  - Pain [Unknown]
  - Increased tendency to bruise [Unknown]
  - Weight increased [Unknown]
  - Arthralgia [Unknown]
  - Back pain [Unknown]
  - Off label use [Unknown]
  - Swelling face [Not Recovered/Not Resolved]
  - Dizziness postural [Unknown]
  - Incontinence [Unknown]
  - Discomfort [Unknown]
  - Neck pain [Unknown]
  - Musculoskeletal stiffness [Unknown]
  - Visual impairment [Unknown]
  - Myalgia [Unknown]
  - Drug ineffective for unapproved indication [Unknown]
  - Dyspnoea [Unknown]

NARRATIVE: CASE EVENT DATE: 20220101
